FAERS Safety Report 15690750 (Version 15)
Quarter: 2020Q1

REPORT INFORMATION
  Report Type: Spontaneous
  Country: US (occurrence: US)
  Receive Date: 20181205
  Receipt Date: 20200306
  Transmission Date: 20200409
  Serious: No
  Sender: FDA-Public Use
  Company Number: US-PFIZER INC-2018500036

PATIENT
  Age: 72 Year
  Sex: Female
  Weight: 68 kg

DRUGS (4)
  1. IBRANCE [Suspect]
     Active Substance: PALBOCICLIB
     Dosage: 125 MG, UNK
     Dates: start: 20181112
  2. IBRANCE [Suspect]
     Active Substance: PALBOCICLIB
     Indication: BREAST CANCER METASTATIC
     Dosage: 100 MG, DAILY
     Route: 048
     Dates: start: 201810
  3. IBRANCE [Suspect]
     Active Substance: PALBOCICLIB
     Dosage: 100 MG, UNK
  4. IBRANCE [Suspect]
     Active Substance: PALBOCICLIB
     Dosage: 75 MG, UNK

REACTIONS (16)
  - Back pain [Unknown]
  - Platelet count decreased [Recovering/Resolving]
  - Fatigue [Unknown]
  - Eye allergy [Unknown]
  - White blood cell count decreased [Recovering/Resolving]
  - Memory impairment [Unknown]
  - Neutrophil count decreased [Unknown]
  - Asthenia [Unknown]
  - Blood count abnormal [Recovering/Resolving]
  - Pain [Unknown]
  - Dyspepsia [Unknown]
  - Alopecia [Unknown]
  - Lacrimation increased [Unknown]
  - Myalgia [Unknown]
  - Joint stiffness [Unknown]
  - Musculoskeletal stiffness [Unknown]
